FAERS Safety Report 11445677 (Version 1)
Quarter: 2015Q3

REPORT INFORMATION
  Report Type: Spontaneous
  Country: US (occurrence: None)
  Receive Date: 20150826
  Receipt Date: 20150826
  Transmission Date: 20151125
  Serious: Yes (Other)
  Sender: FDA-Public Use
  Company Number: PHEH2014US015823

PATIENT
  Age: 43 Year
  Sex: Male

DRUGS (10)
  1. BROMCRIPTIN (BROMOCRIPTINE MESILATE) [Concomitant]
  2. SANDOSTATIN LAR DEPOT [Suspect]
     Active Substance: OCTREOTIDE ACETATE
     Indication: ACROMEGALY
     Dosage: 20 MG, ONCE IN 28 DAYS, INTRAMUSCULAR
     Route: 030
  3. GEMFIBROZIL. [Concomitant]
     Active Substance: GEMFIBROZIL
  4. CORTROSYN (TETRACOSACTIDE) [Concomitant]
  5. CYCLOBENZAPRINE HCL (CYCLOBENZAPRINE HYDROCHLORIDE) [Concomitant]
  6. HYDROCORTISONE. [Concomitant]
     Active Substance: HYDROCORTISONE
  7. VITAMIN D (ERGOCALCIFEROL) [Concomitant]
     Active Substance: ERGOCALCIFEROL
  8. SANDOSTATIN LAR DEPOT [Suspect]
     Active Substance: OCTREOTIDE ACETATE
     Indication: MALIGNANT PITUITARY TUMOUR
     Dosage: 20 MG, ONCE IN 28 DAYS, INTRAMUSCULAR
     Route: 030
  9. TESTOSTERONE CYPIONATE (TESTOSTERONE CIPIONATE) [Concomitant]
  10. NAPROXEN. [Concomitant]
     Active Substance: NAPROXEN

REACTIONS (6)
  - Blood follicle stimulating hormone decreased [None]
  - Cholecystitis [None]
  - Blood prolactin increased [None]
  - Blood luteinising hormone decreased [None]
  - Thyroxine increased [None]
  - Insulin-like growth factor increased [None]

NARRATIVE: CASE EVENT DATE: 20140101
